FAERS Safety Report 19716345 (Version 1)
Quarter: 2021Q3

REPORT INFORMATION
  Report Type: Spontaneous
  Country: US (occurrence: US)
  Receive Date: 20210819
  Receipt Date: 20210819
  Transmission Date: 20211014
  Serious: No
  Sender: FDA-Public Use
  Company Number: US-CELLTRION INC.-2021US007284

PATIENT

DRUGS (2)
  1. TRUXIMA [Suspect]
     Active Substance: RITUXIMAB-ABBS
     Indication: MYOPATHY
  2. TRUXIMA [Suspect]
     Active Substance: RITUXIMAB-ABBS
     Indication: POLYMYOSITIS
     Dosage: 1000 MG ON DAY 1 AND DAY 15, THEN EVERY 6 MONTHS

REACTIONS (3)
  - Intentional dose omission [Unknown]
  - Drug effective for unapproved indication [Unknown]
  - Off label use [Unknown]

NARRATIVE: CASE EVENT DATE: 20210528
